FAERS Safety Report 10396663 (Version 1)
Quarter: 2014Q1

REPORT INFORMATION
  Report Type: Spontaneous
  Country: US (occurrence: None)
  Receive Date: 20130815
  Receipt Date: 20130815
  Transmission Date: 20141002
  Serious: Yes (Other)
  Sender: FDA-Public Use
  Company Number: ADR-2012-01638

PATIENT
  Sex: Male

DRUGS (2)
  1. LIORESAL INTRATHECAL [Suspect]
  2. INFUMORPH [Concomitant]

REACTIONS (6)
  - Infusion site mass [None]
  - Therapeutic response decreased [None]
  - Pain [None]
  - Muscle spasms [None]
  - Hallucination [None]
  - Muscular weakness [None]
